FAERS Safety Report 5475889-8 (Version None)
Quarter: 2007Q4

REPORT INFORMATION
  Report Type: 
  Country: None (occurrence: None)
  Receive Date: 20071003
  Receipt Date: 20070927
  Transmission Date: 20080405
  Serious: Yes (Hospitalization)
  Sender: FDA-Public Use
  Company Number: BR-BRISTOL-MYERS SQUIBB COMPANY-13841424

PATIENT
  Age: 37 Year
  Sex: Female

DRUGS (3)
  1. BELATACEPT [Suspect]
     Indication: RENAL TRANSPLANT
     Route: 042
     Dates: start: 20070513
  2. CELLCEPT [Suspect]
     Dates: start: 20070514, end: 20070717
  3. PREDNISONE [Concomitant]
     Dates: start: 20070517

REACTIONS (1)
  - MYELODYSPLASTIC SYNDROME [None]
